FAERS Safety Report 26214179 (Version 1)
Quarter: 2025Q4

REPORT INFORMATION
  Report Type: Spontaneous
  Country: EU (occurrence: EU)
  Receive Date: 20251230
  Receipt Date: 20251230
  Transmission Date: 20260117
  Serious: Yes (Other)
  Sender: AMGEN
  Company Number: EU-AMGEN-GRCSP2025254581

PATIENT

DRUGS (1)
  1. ECULIZUMAB [Suspect]
     Active Substance: ECULIZUMAB
     Indication: Atypical haemolytic uraemic syndrome
     Dosage: UNK
     Route: 065

REACTIONS (7)
  - Atypical haemolytic uraemic syndrome [Unknown]
  - Chronic kidney disease [Unknown]
  - Renal failure [Unknown]
  - Hypertransaminasaemia [Unknown]
  - Hypertension [Unknown]
  - Proteinuria [Unknown]
  - Off label use [Unknown]
